FAERS Safety Report 8676544 (Version 2)
Quarter: 2012Q4

REPORT INFORMATION
  Report Type: Spontaneous
  Country: FR (occurrence: None)
  Receive Date: 20120705
  Receipt Date: 20120913
  Transmission Date: 20130627
  Serious: Yes (Other)
  Sender: FDA-Public Use
  Company Number: 2012-2912

PATIENT
  Age: 64 Year
  Sex: Female

DRUGS (1)
  1. DYSPORT [Suspect]
     Indication: BLEPHAROSPASM
     Dosage: every 4 months
     Route: 058

REACTIONS (5)
  - Balance disorder [None]
  - VISION BLURRED [None]
  - ASTHENIA [None]
  - WRIST FRACTURE [None]
  - FALL [None]
